FAERS Safety Report 17703704 (Version 1)
Quarter: 2020Q2

REPORT INFORMATION
  Report Type: Spontaneous
  Country: US (occurrence: US)
  Receive Date: 20200423
  Receipt Date: 20200423
  Transmission Date: 20200714
  Serious: Yes (Hospitalization)
  Sender: FDA-Public Use
  Company Number: None

PATIENT
  Age: 62 Year
  Sex: Female

DRUGS (13)
  1. MAXZIDE [Concomitant]
     Active Substance: HYDROCHLOROTHIAZIDE\TRIAMTERENE
  2. PRAMIPEXOLE. [Concomitant]
     Active Substance: PRAMIPEXOLE
  3. BACLOFEN. [Concomitant]
     Active Substance: BACLOFEN
  4. VITAMIN B12 [Concomitant]
     Active Substance: CYANOCOBALAMIN
  5. DULOXETINE. [Concomitant]
     Active Substance: DULOXETINE
  6. CYMBALTA [Concomitant]
     Active Substance: DULOXETINE HYDROCHLORIDE
  7. DALFAMPRIDINE. [Suspect]
     Active Substance: DALFAMPRIDINE
     Route: 048
     Dates: start: 20181115
  8. ESTRADIOL. [Concomitant]
     Active Substance: ESTRADIOL
  9. CLONZEPAM [Concomitant]
     Active Substance: CLONAZEPAM
  10. BIOTIN [Concomitant]
     Active Substance: BIOTIN
  11. OMEGA [Concomitant]
  12. TOVIAZ [Concomitant]
     Active Substance: FESOTERODINE FUMARATE
  13. CENTRUM [Concomitant]
     Active Substance: VITAMINS

REACTIONS (3)
  - Therapy cessation [None]
  - Blood potassium decreased [None]
  - Fall [None]
